FAERS Safety Report 6328030-3 (Version None)
Quarter: 2009Q3

REPORT INFORMATION
  Report Type: 
  Country: None (occurrence: None)
  Receive Date: 20090825
  Receipt Date: 20081007
  Transmission Date: 20100115
  Serious: Yes (Life-Threatening, Other)
  Sender: FDA-Public Use
  Company Number: US-ABBOTT-08P-163-0480244-00

PATIENT
  Sex: Female
  Weight: 80.812 kg

DRUGS (6)
  1. SYNTHROID [Suspect]
     Indication: THYROIDECTOMY
     Route: 048
     Dates: start: 20080818, end: 20080901
  2. ERGOCALCIFEROL [Concomitant]
     Indication: ROUTINE HEALTH MAINTENANCE
     Route: 048
  3. PROMETHAZINE W/ CODEINE [Concomitant]
     Indication: COUGH
     Route: 048
  4. SALBUTAMOL [Concomitant]
     Indication: ASTHMA
     Route: 055
  5. TIOTROPIUM BROMIDE [Concomitant]
     Indication: ASTHMA
     Route: 055
  6. BUDESONIDE W/FORMOTEROL FUMARATE [Concomitant]
     Indication: ASTHMA
     Route: 055

REACTIONS (7)
  - DRY THROAT [None]
  - DYSPNOEA [None]
  - HYPERSENSITIVITY [None]
  - PHARYNGEAL OEDEMA [None]
  - PNEUMONIA [None]
  - RASH [None]
  - SWELLING FACE [None]
